FAERS Safety Report 7765372-9 (Version None)
Quarter: 2011Q3

REPORT INFORMATION
  Report Type: 
  Country: None (occurrence: None)
  Receive Date: 20110916
  Receipt Date: 20110901
  Transmission Date: 20111222
  Serious: Yes (Other)
  Sender: FDA-Public Use
  Company Number: 1031488

PATIENT
  Age: 41 Year
  Sex: Male
  Weight: 93.18 kg

DRUGS (3)
  1. MORPHINE SULFATE [Suspect]
     Indication: PAIN
     Dosage: 5 MG, ONCE, INTRAVENOUS AT 1048, 4 MG, ONCE, INTRAVENOUS AT 0829
     Route: 042
     Dates: start: 20110812, end: 20110812
  2. MORPHINE SULFATE [Suspect]
     Indication: PAIN
     Dosage: 5 MG, ONCE, INTRAVENOUS AT 1048, 4 MG, ONCE, INTRAVENOUS AT 0829
     Route: 042
     Dates: start: 20110812, end: 20110812
  3. ZOFRAN [Concomitant]

REACTIONS (2)
  - URTICARIA [None]
  - INJECTION SITE PRURITUS [None]
